FAERS Safety Report 15752684 (Version 2)
Quarter: 2019Q1

REPORT INFORMATION
  Report Type: Spontaneous
  Country: RU (occurrence: RU)
  Receive Date: 20181221
  Receipt Date: 20190102
  Transmission Date: 20190417
  Serious: Yes (Other)
  Sender: FDA-Public Use
  Company Number: RU-009507513-1812RUS007294

PATIENT
  Sex: Female

DRUGS (1)
  1. DIPROSPAN [Suspect]
     Active Substance: BETAMETHASONE DIPROPIONATE\BETAMETHASONE SODIUM PHOSPHATE
     Dosage: UNK

REACTIONS (7)
  - Feeling abnormal [Unknown]
  - Syncope [Unknown]
  - Wound abscess [Unknown]
  - Eye excision [Unknown]
  - Face injury [Unknown]
  - Hyperglycaemia [Unknown]
  - Blood pressure increased [Unknown]
